FAERS Safety Report 20792549 (Version 2)
Quarter: 2022Q2

REPORT INFORMATION
  Report Type: Report from Study
  Country: US (occurrence: US)
  Receive Date: 20220506
  Receipt Date: 20220613
  Transmission Date: 20220720
  Serious: No
  Sender: FDA-Public Use
  Company Number: US-ACADIA PHARMACEUTICALS INC.-ACA-2022-PIM-001329

PATIENT
  Sex: Male

DRUGS (1)
  1. NUPLAZID [Suspect]
     Active Substance: PIMAVANSERIN TARTRATE
     Indication: Parkinson^s disease
     Dosage: 34 MILLIGRAM, QD
     Route: 048
     Dates: start: 20220120

REACTIONS (5)
  - Head injury [Not Recovered/Not Resolved]
  - Dizziness [Unknown]
  - Product dose omission issue [Recovered/Resolved]
  - Hallucination [Unknown]
  - Fall [Not Recovered/Not Resolved]
